FAERS Safety Report 19518985 (Version 1)
Quarter: 2021Q3

REPORT INFORMATION
  Report Type: Spontaneous
  Country: US (occurrence: US)
  Receive Date: 20210711
  Receipt Date: 20210711
  Transmission Date: 20211014
  Serious: Yes (Life-Threatening, Hospitalization, Disabling)
  Sender: FDA-Public Use
  Company Number: None

PATIENT
  Age: 80 Year
  Sex: Male
  Weight: 96.3 kg

DRUGS (9)
  1. CALCIUM [Concomitant]
     Active Substance: CALCIUM
  2. REMICADE [Concomitant]
     Active Substance: INFLIXIMAB
  3. BETA BLOCKERS [Concomitant]
     Active Substance: UNSPECIFIED INGREDIENT
  4. OPDIVO [Suspect]
     Active Substance: NIVOLUMAB
     Indication: MALIGNANT MELANOMA
     Dosage: ?          QUANTITY:1 INJECTION(S);OTHER FREQUENCY:Q2WKS X 2 THEN QM;?
     Route: 042
     Dates: start: 20210602, end: 20210616
  5. SOLU?MEDROL [Concomitant]
     Active Substance: METHYLPREDNISOLONE SODIUM SUCCINATE
  6. MESTINON [Concomitant]
     Active Substance: PYRIDOSTIGMINE BROMIDE
  7. SOLARIS [Concomitant]
  8. VITAMINS [Concomitant]
     Active Substance: VITAMINS
  9. MAGNESIUM [Concomitant]
     Active Substance: MAGNESIUM

REACTIONS (9)
  - Myocarditis [None]
  - Miller Fisher syndrome [None]
  - Ventricular tachycardia [None]
  - Myasthenia gravis [None]
  - Cerebral ischaemia [None]
  - Lacunar infarction [None]
  - Spinal pain [None]
  - Neck pain [None]
  - Ventricular extrasystoles [None]

NARRATIVE: CASE EVENT DATE: 20210623
